FAERS Safety Report 6563277-2 (Version None)
Quarter: 2010Q1

REPORT INFORMATION
  Report Type: 
  Country: None (occurrence: None)
  Receive Date: 20100130
  Receipt Date: 20091204
  Transmission Date: 20100710
  Serious: No
  Sender: FDA-Public Use
  Company Number: US-ABBOTT-09P-163-0612403-00

PATIENT
  Sex: Female
  Weight: 69.008 kg

DRUGS (2)
  1. HUMIRA [Suspect]
     Indication: CROHN'S DISEASE
     Dates: start: 20091030
  2. CLEOCIN [Concomitant]
     Indication: DRUG USE FOR UNKNOWN INDICATION
     Dosage: X 10 DAYS
     Route: 048
     Dates: start: 20091109, end: 20091118

REACTIONS (1)
  - BLOOD GLUCOSE INCREASED [None]
